FAERS Safety Report 7654236-7 (Version None)
Quarter: 2011Q3

REPORT INFORMATION
  Report Type: 
  Country: None (occurrence: None)
  Receive Date: 20110803
  Receipt Date: 20110727
  Transmission Date: 20111222
  Serious: Yes (Hospitalization, Other)
  Sender: FDA-Public Use
  Company Number: US-ABBOTT-11P-163-0733102-00

PATIENT
  Sex: Female
  Weight: 79.904 kg

DRUGS (16)
  1. DEPAKOTE ER [Suspect]
     Indication: BIPOLAR DISORDER
  2. SYNTHROID [Concomitant]
     Indication: HYPOTHYROIDISM
     Dosage: ALTERNATING WITH 175 MCG
     Route: 048
  3. BIOTIN [Concomitant]
     Indication: VITAMIN SUPPLEMENTATION
     Route: 048
  4. SIMVASTATIN [Concomitant]
     Indication: BLOOD CHOLESTEROL INCREASED
     Route: 048
  5. JANUVIA [Concomitant]
     Indication: DIABETES MELLITUS
     Route: 048
  6. DETROL LA [Concomitant]
     Indication: HYPERTONIC BLADDER
     Route: 048
  7. ASPIRIN [Concomitant]
     Indication: PROPHYLAXIS
     Route: 048
  8. PRESERVATION EYE VITAMIN [Concomitant]
     Indication: MACULAR DEGENERATION
     Route: 047
  9. CALCIUM AND VITAMIN D [Concomitant]
     Indication: VITAMIN SUPPLEMENTATION
     Route: 048
  10. DEPAKOTE ER [Suspect]
     Indication: MANIA
     Route: 048
     Dates: start: 19940101
  11. LISINOPRIL [Concomitant]
     Indication: HYPERTENSION
     Route: 048
  12. SYNTHROID [Concomitant]
     Indication: HYPOTHYROIDISM
     Dosage: ALTERNATING WITH 150 MCG
     Route: 048
  13. OMEGA 3 KRILL OIL [Concomitant]
     Indication: BLOOD CHOLESTEROL INCREASED
  14. LEVOTHYROXINE SODIUM [Concomitant]
     Indication: HYPOTHYROIDISM
  15. TRAZODONE HYDROCHLORIDE [Concomitant]
     Indication: SLEEP DISORDER THERAPY
     Route: 048
  16. SENIOR VITAMIN [Concomitant]
     Indication: VITAMIN SUPPLEMENTATION
     Route: 048

REACTIONS (9)
  - HIATUS HERNIA [None]
  - HYPONATRAEMIA [None]
  - SINUSITIS [None]
  - HEADACHE [None]
  - BRONCHITIS [None]
  - BREATH SOUNDS ABNORMAL [None]
  - MALAISE [None]
  - NODULE [None]
  - NAUSEA [None]
